FAERS Safety Report 9668373 (Version 2)
Quarter: 2013Q4

REPORT INFORMATION
  Report Type: Report from Study
  Country: GB (occurrence: GB)
  Receive Date: 20131104
  Receipt Date: 20131112
  Transmission Date: 20140711
  Serious: Yes (Hospitalization)
  Sender: FDA-Public Use
  Company Number: PHHY2013GB122854

PATIENT
  Age: 58 Year
  Sex: Male

DRUGS (7)
  1. TEGRETOL [Suspect]
     Indication: NEURALGIA
     Route: 048
     Dates: start: 20130601, end: 20130808
  2. RAMIPRIL [Suspect]
     Indication: PROPHYLAXIS
     Route: 048
     Dates: start: 201209, end: 20130808
  3. BISOPROLOL [Concomitant]
     Indication: ISCHAEMIC HEART DISEASE PROPHYLAXIS
     Route: 048
  4. ATORVASTATIN [Concomitant]
     Indication: LIPIDS INCREASED
     Route: 048
  5. METFORMIN [Concomitant]
     Indication: DIABETES MELLITUS
     Route: 048
  6. BETAHISTINE [Concomitant]
     Indication: MENIERE^S DISEASE
     Route: 048
  7. ASA [Concomitant]
     Route: 048

REACTIONS (1)
  - Rash generalised [Not Recovered/Not Resolved]
